FAERS Safety Report 15806451 (Version 7)
Quarter: 2022Q1

REPORT INFORMATION
  Report Type: Spontaneous
  Country: US (occurrence: US)
  Receive Date: 20190110
  Receipt Date: 20220112
  Transmission Date: 20220423
  Serious: No
  Sender: FDA-Public Use
  Company Number: US-PFIZER INC-2018179479

PATIENT
  Age: 13 Year
  Sex: Male

DRUGS (14)
  1. GENOTROPIN [Suspect]
     Active Substance: SOMATROPIN
     Indication: Growth hormone deficiency
     Dosage: 1 MG, DAILY
     Dates: start: 20171020
  2. GENOTROPIN [Suspect]
     Active Substance: SOMATROPIN
     Dosage: UNK
  3. GENOTROPIN [Suspect]
     Active Substance: SOMATROPIN
     Dosage: 1.4 MG, 1X/DAY (ON HIS LEG)
     Route: 058
  4. GENOTROPIN [Suspect]
     Active Substance: SOMATROPIN
     Dosage: 1.4 MG, DAILY
     Dates: start: 20171120
  5. GENOTROPIN [Suspect]
     Active Substance: SOMATROPIN
     Dosage: 1.6 MG, DAILY
     Dates: start: 201711
  6. GENOTROPIN [Suspect]
     Active Substance: SOMATROPIN
     Dosage: UNK
  7. CETIRIZINE [Concomitant]
     Active Substance: CETIRIZINE HYDROCHLORIDE
     Indication: Hypersensitivity
     Dosage: 10 MG, 1X/DAY
     Route: 048
     Dates: start: 2016
  8. DEXMETHYLPHENIDATE [Concomitant]
     Active Substance: DEXMETHYLPHENIDATE
     Indication: Attention deficit hyperactivity disorder
     Dosage: 25 MG, 1X/DAY
     Route: 048
  9. METHYLPHENIDATE [Concomitant]
     Active Substance: METHYLPHENIDATE
     Indication: Attention deficit hyperactivity disorder
     Dosage: 10 MG, 1X/DAY
     Route: 048
     Dates: start: 2017
  10. CLONIDINE [Concomitant]
     Active Substance: CLONIDINE
     Indication: Oppositional defiant disorder
     Dosage: 0.1 MG, 1X/DAY
     Route: 048
  11. ARIPIPRAZOLE [Concomitant]
     Active Substance: ARIPIPRAZOLE
     Indication: Oppositional defiant disorder
     Dosage: 5 MG, 1X/DAY
     Route: 048
  12. FOCALIN [Concomitant]
     Active Substance: DEXMETHYLPHENIDATE HYDROCHLORIDE
     Indication: Attention deficit hyperactivity disorder
     Dosage: 25 MG, 1X/DAY
     Route: 048
     Dates: start: 2016
  13. ABILIFY [Concomitant]
     Active Substance: ARIPIPRAZOLE
     Indication: Oppositional defiant disorder
     Dosage: 15 MG, 1X/DAY
     Route: 048
     Dates: start: 2017
  14. GUANFACINE [Concomitant]
     Active Substance: GUANFACINE
     Indication: Oppositional defiant disorder
     Dosage: 2 MG, 1X/DAY
     Route: 048
     Dates: start: 201810

REACTIONS (6)
  - Drug ineffective [Unknown]
  - Injection site extravasation [Unknown]
  - Dehydroepiandrosterone increased [Unknown]
  - Wrong technique in device usage process [Unknown]
  - Product dose omission issue [Unknown]
  - Incorrect dose administered [Unknown]
